FAERS Safety Report 13710692 (Version 1)
Quarter: 2017Q3

REPORT INFORMATION
  Report Type: Spontaneous
  Country: US (occurrence: US)
  Receive Date: 20170702
  Receipt Date: 20170702
  Transmission Date: 20171127
  Serious: Yes (Disabling)
  Sender: FDA-Public Use
  Company Number: None

PATIENT
  Age: 88 Year
  Sex: Female
  Weight: 50.4 kg

DRUGS (8)
  1. HCTZ [Concomitant]
     Active Substance: HYDROCHLOROTHIAZIDE
  2. COZAAR [Concomitant]
     Active Substance: LOSARTAN POTASSIUM
  3. XARELTO [Concomitant]
     Active Substance: RIVAROXABAN
  4. CALCIM AND VITAMIN D [Concomitant]
  5. SYNTHROID [Concomitant]
     Active Substance: LEVOTHYROXINE SODIUM
  6. PROLIA [Suspect]
     Active Substance: DENOSUMAB
     Indication: OSTEOPOROSIS
     Dates: start: 20150120
  7. ALDACTONE [Concomitant]
     Active Substance: SPIRONOLACTONE
  8. DILTIAZAM CD [Concomitant]
     Active Substance: DILTIAZEM

REACTIONS (6)
  - Back pain [None]
  - Dysphagia [None]
  - Pain in jaw [None]
  - Oropharyngeal pain [None]
  - Respiratory disorder [None]
  - Myalgia [None]

NARRATIVE: CASE EVENT DATE: 20150801
